FAERS Safety Report 8505991-5 (Version None)
Quarter: 2012Q3

REPORT INFORMATION
  Report Type: 
  Country: None (occurrence: None)
  Receive Date: 20120712
  Receipt Date: 20120706
  Transmission Date: 20120928
  Serious: Yes (Hospitalization)
  Sender: FDA-Public Use
  Company Number: FR-GLAXOSMITHKLINE-B0813128A

PATIENT
  Sex: Female

DRUGS (4)
  1. QUETIAPINE [Suspect]
     Indication: DEPRESSION
     Dosage: 50MG TWICE PER DAY
     Route: 048
     Dates: start: 20120201, end: 20120605
  2. TRIHEXYPHENIDYL HYDROCHLORIDE [Suspect]
     Indication: EXTRAPYRAMIDAL DISORDER
     Dosage: 5MG PER DAY
     Route: 048
     Dates: start: 20120201, end: 20120605
  3. SULFARLEM [Suspect]
     Indication: DRY MOUTH
     Dosage: 75MG TWICE PER DAY
     Route: 048
     Dates: start: 20120201, end: 20120605
  4. PAROXETINE HCL [Suspect]
     Indication: DEPRESSION
     Dosage: 20MG PER DAY
     Route: 048
     Dates: start: 20120201, end: 20120605

REACTIONS (2)
  - HEPATITIS CHOLESTATIC [None]
  - CYTOLYTIC HEPATITIS [None]
